FAERS Safety Report 10549165 (Version 1)
Quarter: 2014Q4

REPORT INFORMATION
  Report Type: Spontaneous
  Country: US (occurrence: None)
  Receive Date: 20141016
  Receipt Date: 20141016
  Transmission Date: 20150529
  Serious: No
  Sender: FDA-Public Use
  Company Number: CABO-14004483

PATIENT
  Age: 66 Year
  Sex: Male
  Weight: 81.8 kg

DRUGS (11)
  1. COMETRIQ [Suspect]
     Active Substance: CABOZANTINIB S-MALATE
     Indication: RENAL CANCER
     Route: 048
     Dates: start: 20140603
  2. FENOFIBRATE (FENOFIBRATE) [Concomitant]
  3. SENOKOT (SENNA ALEXANDRINA) [Concomitant]
  4. AMBIEN [Concomitant]
     Active Substance: ZOLPIDEM TARTRATE
  5. OXYCONTIN [Concomitant]
     Active Substance: OXYCODONE HYDROCHLORIDE
  6. OXYCODONE (OXYCODONE) [Concomitant]
     Active Substance: OXYCODONE
  7. GINSENG (PANAX GINSENG) [Concomitant]
  8. BENADRYL [Concomitant]
     Active Substance: DIPHENHYDRAMINE HYDROCHLORIDE
  9. LIPITOR [Concomitant]
     Active Substance: ATORVASTATIN CALCIUM
  10. OMPERAZOLE (OMEPRAZOLE) [Concomitant]
  11. TYLENOL [Concomitant]
     Active Substance: ACETAMINOPHEN

REACTIONS (10)
  - Tongue discolouration [None]
  - Skin discolouration [None]
  - Dry mouth [None]
  - Aphagia [None]
  - Gait disturbance [None]
  - Oral discomfort [None]
  - Tongue dry [None]
  - Speech disorder [None]
  - Skin ulcer [None]
  - Off label use [None]

NARRATIVE: CASE EVENT DATE: 201406
